FAERS Safety Report 8329715-X (Version None)
Quarter: 2012Q2

REPORT INFORMATION
  Report Type: 
  Country: None (occurrence: None)
  Receive Date: 20120502
  Receipt Date: 20120423
  Transmission Date: 20120825
  Serious: Yes (Other)
  Sender: FDA-Public Use
  Company Number: JP-GLAXOSMITHKLINE-B0798657A

PATIENT
  Age: 30 Year
  Sex: Male

DRUGS (2)
  1. RITONAVIR [Suspect]
     Indication: HIV INFECTION
     Route: 048
  2. FLUTICASONE PROPIONATE [Suspect]
     Indication: ASTHMA
     Route: 055

REACTIONS (10)
  - BACK PAIN [None]
  - BLOOD CORTISOL DECREASED [None]
  - CUSHING'S SYNDROME [None]
  - CUSHINGOID [None]
  - OSTEOPOROSIS [None]
  - ACNE [None]
  - COMPRESSION FRACTURE [None]
  - WEIGHT INCREASED [None]
  - BLOOD CORTICOTROPHIN [None]
  - CENTRAL OBESITY [None]
